FAERS Safety Report 6732121-2 (Version None)
Quarter: 2010Q2

REPORT INFORMATION
  Report Type: 
  Country: None (occurrence: None)
  Receive Date: 20100519
  Receipt Date: 20100513
  Transmission Date: 20101027
  Serious: Yes (Death)
  Sender: FDA-Public Use
  Company Number: PHHY2010LB31760

PATIENT
  Sex: Female

DRUGS (2)
  1. ACLASTA [Suspect]
     Dosage: ONCE YEARLY
     Dates: start: 20091024
  2. AMIODARONE [Concomitant]

REACTIONS (1)
  - CEREBRAL HAEMORRHAGE [None]
